FAERS Safety Report 5906497-X (Version None)
Quarter: 2008Q4

REPORT INFORMATION
  Report Type: 
  Country: None (occurrence: None)
  Receive Date: 20081002
  Receipt Date: 20080925
  Transmission Date: 20090506
  Serious: Yes (Congenital Anomaly)
  Sender: FDA-Public Use
  Company Number: ZA-ABBOTT-08P-143-0478619-00

PATIENT
  Sex: Female

DRUGS (3)
  1. RITONAVIR SOFT GELATIN CAPSULES [Suspect]
     Indication: HIV INFECTION
     Route: 064
     Dates: start: 20080425, end: 20080725
  2. LAMIVUDINE + ZIDOVUDINE [Concomitant]
     Indication: DRUG USE FOR UNKNOWN INDICATION
     Route: 064
     Dates: start: 20080425, end: 20080725
  3. ATAZANAVIR SULFATE [Concomitant]
     Indication: DRUG USE FOR UNKNOWN INDICATION
     Route: 064
     Dates: start: 20080425, end: 20080725

REACTIONS (1)
  - ATRIAL SEPTAL DEFECT [None]
